FAERS Safety Report 4708441-X (Version None)
Quarter: 2005Q3

REPORT INFORMATION
  Report Type: 
  Country: None (occurrence: None)
  Receive Date: 20050707
  Receipt Date: 20050627
  Transmission Date: 20060218
  Serious: Yes (Death)
  Sender: FDA-Public Use
  Company Number: US-JNJFOC-20050404589

PATIENT
  Sex: Female

DRUGS (2)
  1. REMINYL [Suspect]
     Route: 049
     Dates: start: 20011201, end: 20050327
  2. NAMENDA [Concomitant]
     Route: 049

REACTIONS (4)
  - ATRIAL FIBRILLATION [None]
  - CARDIAC FAILURE CONGESTIVE [None]
  - DEMENTIA ALZHEIMER'S TYPE [None]
  - PNEUMONIA [None]
